FAERS Safety Report 21850472 (Version 1)
Quarter: 2023Q1

REPORT INFORMATION
  Report Type: Report from Study
  Country: US (occurrence: US)
  Receive Date: 20230111
  Receipt Date: 20230111
  Transmission Date: 20230417
  Serious: No
  Sender: FDA-Public Use
  Company Number: US-ABBVIE-4239799

PATIENT
  Sex: Female

DRUGS (2)
  1. HUMIRA [Suspect]
     Active Substance: ADALIMUMAB
     Indication: Crohn^s disease
     Dosage: CITRATE FREE;?FORM STRENGTH: 40 MILLIGRAM
     Route: 058
     Dates: start: 20200512
  2. HUMIRA [Suspect]
     Active Substance: ADALIMUMAB
     Dosage: CITRATE FREE;?FORM STRENGTH: 40 MILLIGRAM
     Route: 058

REACTIONS (1)
  - Nausea [Not Recovered/Not Resolved]
